FAERS Safety Report 6273022-6 (Version None)
Quarter: 2009Q3

REPORT INFORMATION
  Report Type: 
  Country: None (occurrence: None)
  Receive Date: 20090715
  Receipt Date: 20090715
  Transmission Date: 20100115
  Serious: Yes (Life-Threatening, Other)
  Sender: FDA-Public Use
  Company Number: None

PATIENT
  Sex: Male
  Weight: 62.5964 kg

DRUGS (2)
  1. METRONIDAZOLE [Suspect]
  2. FLUCONAZOLE [Suspect]

REACTIONS (6)
  - BONE NEOPLASM MALIGNANT [None]
  - HALLUCINATION [None]
  - HEPATITIS C [None]
  - HIV INFECTION [None]
  - REFUSAL OF TREATMENT BY PATIENT [None]
  - SELF-MEDICATION [None]
